FAERS Safety Report 6446618-6 (Version None)
Quarter: 2009Q4

REPORT INFORMATION
  Report Type: 
  Country: None (occurrence: None)
  Receive Date: 20091102
  Receipt Date: 20080724
  Transmission Date: 20100525
  Serious: Yes (Other)
  Sender: FDA-Public Use
  Company Number: AEUSA200800161

PATIENT
  Age: 46 Year
  Sex: Female
  Weight: 49.8957 kg

DRUGS (3)
  1. GAMUNEX [Suspect]
     Indication: IMMUNODEFICIENCY COMMON VARIABLE
     Dosage: QM; IV
     Route: 042
     Dates: start: 20040101, end: 20080701
  2. CYMBALTA [Concomitant]
  3. LAMICTAL [Concomitant]

REACTIONS (5)
  - DIZZINESS [None]
  - FACIAL PAIN [None]
  - FATIGUE [None]
  - HERPES SIMPLEX [None]
  - SINUSITIS [None]
